FAERS Safety Report 24412692 (Version 1)
Quarter: 2024Q4

REPORT INFORMATION
  Report Type: Spontaneous
  Country: CN (occurrence: CN)
  Receive Date: 20241008
  Receipt Date: 20241008
  Transmission Date: 20250115
  Serious: Yes (Other)
  Sender: BAYER
  Company Number: CN-BAYER-2024A142672

PATIENT
  Age: 70 Year
  Sex: Female
  Weight: 46.5 kg

DRUGS (3)
  1. STIVARGA [Suspect]
     Active Substance: REGORAFENIB MONOHYDRATE
     Indication: Adenocarcinoma gastric
     Dosage: 160 MG, QD
     Route: 048
     Dates: start: 20240905, end: 20240918
  2. STIVARGA [Suspect]
     Active Substance: REGORAFENIB MONOHYDRATE
     Indication: Chemotherapy
  3. GRANULOCYTE-MACROPHAGE COLONY-STIMULATING FACTOR [Concomitant]
     Active Substance: GRANULOCYTE-MACROPHAGE COLONY-STIMULATING FACTOR
     Indication: White blood cell count decreased
     Dosage: UNK
     Dates: start: 2024, end: 2024

REACTIONS (5)
  - Myelosuppression [Unknown]
  - Fatigue [None]
  - Asthenia [None]
  - Decreased appetite [Recovering/Resolving]
  - Off label use [None]

NARRATIVE: CASE EVENT DATE: 20240901
